FAERS Safety Report 5355629-3 (Version None)
Quarter: 2007Q2

REPORT INFORMATION
  Report Type: 
  Country: None (occurrence: None)
  Receive Date: 20070613
  Receipt Date: 20070605
  Transmission Date: 20071010
  Serious: Yes (Other)
  Sender: FDA-Public Use
  Company Number: B0474813A

PATIENT

DRUGS (1)
  1. LAPATINIB [Suspect]
     Indication: PROSTATE CANCER
     Dosage: 1500MG PER DAY
     Route: 048

REACTIONS (1)
  - VISION BLURRED [None]
